FAERS Safety Report 5905569-3 (Version None)
Quarter: 2008Q3

REPORT INFORMATION
  Report Type: 
  Country: None (occurrence: None)
  Receive Date: 20080909
  Receipt Date: 20071024
  Transmission Date: 20090109
  Serious: Yes (Other)
  Sender: FDA-Public Use
  Company Number: 163-20785-07101434

PATIENT
  Age: 58 Year
  Sex: Male

DRUGS (2)
  1. THALOMID [Suspect]
     Indication: MULTIPLE MYELOMA
     Dosage: 100-200MG DAILY, ORAL : 100-150MG, ORAL
     Route: 048
     Dates: start: 20050601, end: 20051201
  2. THALOMID [Suspect]
     Indication: MULTIPLE MYELOMA
     Dosage: 100-200MG DAILY, ORAL : 100-150MG, ORAL
     Route: 048
     Dates: start: 20070821

REACTIONS (1)
  - THROMBOSIS [None]
